FAERS Safety Report 10464203 (Version 3)
Quarter: 2014Q4

REPORT INFORMATION
  Report Type: Spontaneous
  Country: CA (occurrence: None)
  Receive Date: 20140917
  Receipt Date: 20141103
  Transmission Date: 20150528
  Serious: Yes (Other)
  Sender: FDA-Public Use
  Company Number: CA-014836

PATIENT
  Age: 58 Year
  Sex: Male

DRUGS (14)
  1. VI-STAR B COMPLEX [Concomitant]
  2. ADALAT [Concomitant]
     Active Substance: NIFEDIPINE
  3. FIRMAGON [Suspect]
     Active Substance: DEGARELIX ACETATE
     Indication: PROSTATE CANCER
     Route: 058
     Dates: start: 20131220, end: 20131220
  4. CALCIUM [Concomitant]
     Active Substance: CALCIUM
  5. OMEPRAZOLE. [Concomitant]
     Active Substance: OMEPRAZOLE
  6. XGEVA [Suspect]
     Active Substance: DENOSUMAB
  7. VITAMIN D [Concomitant]
     Active Substance: CHOLECALCIFEROL
  8. PROTEINS NOS [Concomitant]
  9. APOVIT SMARTKIDZ OMEGA 3 [Concomitant]
  10. NEXIUM [Concomitant]
     Active Substance: ESOMEPRAZOLE MAGNESIUM
  11. ENZYMES NOS [Concomitant]
  12. PROLIA [Concomitant]
     Active Substance: DENOSUMAB
  13. POLYETHYLENE GLYCOL [Concomitant]
     Active Substance: POLYETHYLENE GLYCOLS
  14. TYLENOL SIMPLY SLEEP [Concomitant]

REACTIONS (12)
  - Dysuria [None]
  - Hyperhidrosis [None]
  - Arthralgia [None]
  - Blood pressure increased [None]
  - Abdominal pain upper [None]
  - Back pain [None]
  - Fatigue [None]
  - Enuresis [None]
  - Quality of life decreased [None]
  - Obstructive uropathy [None]
  - Hot flush [None]
  - Constipation [None]

NARRATIVE: CASE EVENT DATE: 20131220
